FAERS Safety Report 21314733 (Version 1)
Quarter: 2022Q3

REPORT INFORMATION
  Report Type: Spontaneous
  Country: US (occurrence: None)
  Receive Date: 20220909
  Receipt Date: 20220909
  Transmission Date: 20221027
  Serious: No
  Sender: FDA-Public Use
  Company Number: US-ARIS GLOBAL-202110-1942

PATIENT
  Sex: Male

DRUGS (18)
  1. OXERVATE [Suspect]
     Active Substance: CENEGERMIN-BKBJ
     Indication: Neurotrophic keratopathy
     Route: 047
     Dates: start: 20210916
  2. ATORVASTATIN CALCIUM [Concomitant]
     Active Substance: ATORVASTATIN CALCIUM
  3. FINASTERIDE [Concomitant]
     Active Substance: FINASTERIDE
  4. PROBIOTIC 10B CELL [Concomitant]
  5. GINKGO [Concomitant]
     Active Substance: GINKGO
  6. CHONDROITIN SULFATE A\GLUCOSAMINE [Concomitant]
     Active Substance: CHONDROITIN SULFATE A\GLUCOSAMINE
     Dosage: 1500-400 MG
  7. VITAMIN C [Concomitant]
     Active Substance: ASCORBIC ACID
  8. ZYRTEC [Concomitant]
     Active Substance: CETIRIZINE HYDROCHLORIDE
  9. ALLOPURINOL [Concomitant]
     Active Substance: ALLOPURINOL
  10. ROCALTROL [Concomitant]
     Active Substance: CALCITRIOL
  11. LYRICA [Concomitant]
     Active Substance: PREGABALIN
  12. TRAMADOL HYDROCHLORIDE [Concomitant]
     Active Substance: TRAMADOL HYDROCHLORIDE
  13. FAMOTIDINE [Concomitant]
     Active Substance: FAMOTIDINE
  14. METOPROLOL SUCCINATE [Concomitant]
     Active Substance: METOPROLOL SUCCINATE
  15. DOXYCYCLINE HYCLATE [Concomitant]
     Active Substance: DOXYCYCLINE HYCLATE
  16. ASPIRIN [Concomitant]
     Active Substance: ASPIRIN
  17. MOXIFLOXACIN [Concomitant]
     Active Substance: MOXIFLOXACIN
  18. REFRESH CLASSIC [Concomitant]
     Active Substance: POLYVINYL ALCOHOL\POVIDONE

REACTIONS (4)
  - Eye pain [Not Recovered/Not Resolved]
  - Eye irritation [Not Recovered/Not Resolved]
  - Vision blurred [Not Recovered/Not Resolved]
  - Photophobia [Not Recovered/Not Resolved]
